FAERS Safety Report 7453762-3 (Version None)
Quarter: 2011Q2

REPORT INFORMATION
  Report Type: 
  Country: None (occurrence: None)
  Receive Date: 20110502
  Receipt Date: 20110118
  Transmission Date: 20111010
  Serious: Yes (Hospitalization)
  Sender: FDA-Public Use
  Company Number: US-ASTRAZENECA-2011SE03412

PATIENT
  Age: 21 Year
  Sex: Female

DRUGS (3)
  1. NEXIUM [Suspect]
     Route: 048
  2. SEROQUEL XR [Suspect]
     Route: 048
  3. SEROQUEL XR [Suspect]
     Route: 048

REACTIONS (6)
  - MALAISE [None]
  - DRUG DOSE OMISSION [None]
  - VOMITING [None]
  - HEADACHE [None]
  - DRUG WITHDRAWAL SYNDROME [None]
  - NAUSEA [None]
